FAERS Safety Report 9120568 (Version 2)
Quarter: 2013Q1

REPORT INFORMATION
  Report Type: Spontaneous
  Country: US (occurrence: US)
  Receive Date: 20130226
  Receipt Date: 20130304
  Transmission Date: 20140127
  Serious: Yes (Death, Hospitalization)
  Sender: FDA-Public Use
  Company Number: US-ALEXION PHARMACEUTICALS INC.-A201300273

PATIENT
  Age: 72 Year
  Sex: Female
  Weight: 73 kg

DRUGS (14)
  1. SOLIRIS 300MG [Suspect]
     Indication: HAEMOLYTIC URAEMIC SYNDROME
     Dosage: UNK
     Route: 042
  2. PREDNISONE [Concomitant]
  3. ALBUTEROL [Concomitant]
  4. COREG [Concomitant]
  5. LASIX [Concomitant]
  6. TYLENOL [Concomitant]
  7. ASA [Concomitant]
  8. PANTOPRAZOLE [Concomitant]
  9. LORAZEPAM [Concomitant]
  10. AMLODIPINE [Concomitant]
  11. ZOFRAN [Concomitant]
  12. DIFLUCAN [Concomitant]
  13. VANCOMYCIN [Concomitant]
  14. MAGNESIUM SULFATE [Concomitant]

REACTIONS (1)
  - Death [Fatal]
